FAERS Safety Report 8565310 (Version 2)
Quarter: 2013Q3

REPORT INFORMATION
  Report Type: Spontaneous
  Country: FI (occurrence: FI)
  Receive Date: 20120516
  Receipt Date: 20130903
  Transmission Date: 20140515
  Serious: Yes (Hospitalization)
  Sender: FDA-Public Use
  Company Number: FI-ROCHE-797793

PATIENT
  Age: 27 Year
  Sex: Male

DRUGS (5)
  1. MABTHERA [Suspect]
     Indication: GRANULOMATOSIS WITH POLYANGIITIS
     Dosage: FREQUENCY: ON DAY 1 AND DAY 15
     Route: 042
     Dates: start: 20110114, end: 20110128
  2. TREXAN [Suspect]
     Indication: GRANULOMATOSIS WITH POLYANGIITIS
     Route: 065
     Dates: end: 20110613
  3. PREDNISONE [Concomitant]
     Indication: GRANULOMATOSIS WITH POLYANGIITIS
     Route: 048
  4. PREDNISONE [Concomitant]
     Route: 065
  5. KALCIPOS-D [Concomitant]
     Indication: PROPHYLAXIS

REACTIONS (2)
  - Neutropenic sepsis [Recovered/Resolved]
  - Tinea versicolour [Recovered/Resolved]
